FAERS Safety Report 15783336 (Version 1)
Quarter: 2019Q1

REPORT INFORMATION
  Report Type: Spontaneous
  Country: US (occurrence: US)
  Receive Date: 20190102
  Receipt Date: 20190102
  Transmission Date: 20190417
  Serious: No
  Sender: FDA-Public Use
  Company Number: US-NEPHRON PHARMACEUTICALS CORPORATION-2060772

PATIENT
  Age: 49 Year
  Sex: Female
  Weight: 109.09 kg

DRUGS (3)
  1. ALBUTEROL SULFATE INHALATION SOLUTION, 0.083% [Suspect]
     Active Substance: ALBUTEROL SULFATE
     Indication: UPPER RESPIRATORY TRACT INFECTION
     Route: 055
     Dates: start: 20181226
  2. CEPACOL SORE THROAT AND COUGH [Concomitant]
     Active Substance: BENZOCAINE\DEXTROMETHORPHAN HYDROBROMIDE
  3. SYMBICORT [Concomitant]
     Active Substance: BUDESONIDE\FORMOTEROL FUMARATE DIHYDRATE

REACTIONS (2)
  - Throat irritation [Recovering/Resolving]
  - Tongue discomfort [Recovered/Resolved]

NARRATIVE: CASE EVENT DATE: 20181227
